FAERS Safety Report 8919245 (Version 1)
Quarter: 2012Q4

REPORT INFORMATION
  Report Type: 
  Country: US (occurrence: US)
  Receive Date: 20121121
  Receipt Date: 20121121
  Transmission Date: 20130627
  Serious: Yes (Other)
  Sender: FDA-Public Use
  Company Number: US-PFIZER INC-2012291188

PATIENT
  Age: 59 Year
  Sex: Female
  Weight: 90.7 kg

DRUGS (2)
  1. ALDACTONE [Suspect]
     Indication: FLUID RETENTION
     Dosage: 100 mg, 2x/day
  2. LOPRESSOR [Concomitant]
     Indication: BLOOD PRESSURE HIGH
     Dosage: 50 mg, 2x/day

REACTIONS (1)
  - Diabetes mellitus [Unknown]
